FAERS Safety Report 20938500 (Version 1)
Quarter: 2022Q2

REPORT INFORMATION
  Report Type: Spontaneous
  Country: US (occurrence: US)
  Receive Date: 20220609
  Receipt Date: 20220609
  Transmission Date: 20220721
  Serious: Yes (Other)
  Sender: FDA-Public Use
  Company Number: US-PFIZER INC-202200785279

PATIENT
  Age: 73 Year
  Sex: Male

DRUGS (5)
  1. BUPIVACAINE HYDROCHLORIDE [Suspect]
     Active Substance: BUPIVACAINE HYDROCHLORIDE
     Dosage: CONTINUOUS INFUSION OF 0.1% BUPIVACAINE, 2 ML/HR
  2. BUPIVACAINE HYDROCHLORIDE [Suspect]
     Active Substance: BUPIVACAINE HYDROCHLORIDE
     Dosage: 0.125% BUPIVACAINE AT A RATE OF 6 ML/HR
  3. BUPIVACAINE HYDROCHLORIDE\EPINEPHRINE [Suspect]
     Active Substance: BUPIVACAINE HYDROCHLORIDE\EPINEPHRINE
     Dosage: 30 ML OF 0.5% BUPIVACAINE WITH EPINEPHRINE (RATIO, 1:200,000)
  4. BUPIVACAINE HYDROCHLORIDE\EPINEPHRINE [Suspect]
     Active Substance: BUPIVACAINE HYDROCHLORIDE\EPINEPHRINE
     Dosage: 15-ML BOLUS OF 0.25% BUPIVACAINE WITH EPINEPHRINE (RATIO, 1:200,000)
  5. HEPARIN SODIUM [Concomitant]
     Active Substance: HEPARIN SODIUM
     Indication: Ventricular tachycardia
     Dosage: DRIP, HELD FOR 2 HRS
     Route: 041

REACTIONS (1)
  - Horner^s syndrome [Unknown]
